FAERS Safety Report 6993473-1 (Version None)
Quarter: 2010Q3

REPORT INFORMATION
  Report Type: 
  Country: None (occurrence: None)
  Receive Date: 20100917
  Receipt Date: 20100223
  Transmission Date: 20110219
  Serious: No
  Sender: FDA-Public Use
  Company Number: US-ASTRAZENECA-2010SE07821

PATIENT
  Sex: Male

DRUGS (1)
  1. SEROQUEL XR [Suspect]
     Dosage: 400 MG PER DAY
     Route: 048

REACTIONS (3)
  - DRUG DOSE OMISSION [None]
  - HEADACHE [None]
  - VISION BLURRED [None]
